FAERS Safety Report 5505090-0 (Version None)
Quarter: 2007Q4

REPORT INFORMATION
  Report Type: 
  Country: None (occurrence: None)
  Receive Date: 20071102
  Receipt Date: 20071026
  Transmission Date: 20080405
  Serious: Yes (Other)
  Sender: FDA-Public Use
  Company Number: US-ASTRAZENECA-2007UW25047

PATIENT
  Age: 82 Year
  Sex: Female
  Weight: 68 kg

DRUGS (7)
  1. NEXIUM [Suspect]
     Indication: GASTROOESOPHAGEAL REFLUX DISEASE
     Route: 048
     Dates: start: 20010101
  2. NEXIUM [Suspect]
     Route: 048
     Dates: start: 20010101
  3. ASPIRIN [Concomitant]
  4. DIGITEK [Concomitant]
  5. LIPITOR [Concomitant]
  6. CENTRUM SILVER [Concomitant]
  7. FISH OIL [Concomitant]

REACTIONS (6)
  - CARDIAC PACEMAKER INSERTION [None]
  - CONTUSION [None]
  - DIZZINESS [None]
  - PARAESTHESIA [None]
  - PERIPHERAL NERVE OPERATION [None]
  - VITAMIN B12 DEFICIENCY [None]
